FAERS Safety Report 19436860 (Version 5)
Quarter: 2021Q4

REPORT INFORMATION
  Report Type: Report from Study
  Country: US (occurrence: US)
  Receive Date: 20210618
  Receipt Date: 20211004
  Transmission Date: 20220304
  Serious: Yes (Other)
  Sender: FDA-Public Use
  Company Number: US-NOVARTISPH-NVSC2021US137995

PATIENT
  Sex: Female

DRUGS (1)
  1. KISQALI [Suspect]
     Active Substance: RIBOCICLIB
     Indication: Product used for unknown indication
     Dosage: UNK
     Route: 048
     Dates: start: 20210608

REACTIONS (12)
  - Clostridium difficile colitis [Unknown]
  - Depression [Unknown]
  - Abdominal discomfort [Unknown]
  - Crying [Unknown]
  - Discomfort [Unknown]
  - Emotional disorder [Unknown]
  - Uterine prolapse [Unknown]
  - Abdominal pain upper [Unknown]
  - Vomiting [Unknown]
  - Constipation [Unknown]
  - Diarrhoea [Unknown]
  - Weight decreased [Unknown]
